FAERS Safety Report 9802933 (Version 1)
Quarter: 2014Q1

REPORT INFORMATION
  Report Type: Spontaneous
  Country: US (occurrence: None)
  Receive Date: 20140106
  Receipt Date: 20140106
  Transmission Date: 20141002
  Serious: Yes (Disabling)
  Sender: FDA-Public Use
  Company Number: None

PATIENT
  Age: 79 Year
  Sex: Male
  Weight: 61.24 kg

DRUGS (3)
  1. SIMVASTATIN 20 MG [Suspect]
     Indication: HYPERLIPIDAEMIA
     Route: 048
  2. GLIMIPERIDE [Concomitant]
  3. OMEPRAZOLE [Concomitant]

REACTIONS (1)
  - Myelodysplastic syndrome [None]
